FAERS Safety Report 14256679 (Version 2)
Quarter: 2017Q4

REPORT INFORMATION
  Report Type: Spontaneous
  Country: JP (occurrence: JP)
  Receive Date: 20171206
  Receipt Date: 20171227
  Transmission Date: 20180321
  Serious: Yes (Other)
  Sender: FDA-Public Use
  Company Number: JP-PFIZER INC-2017519191

PATIENT
  Age: 68 Year
  Sex: Female

DRUGS (1)
  1. DALACIN S [Suspect]
     Active Substance: CLINDAMYCIN PHOSPHATE
     Dosage: UNK

REACTIONS (2)
  - Depressed level of consciousness [Unknown]
  - Lymphocyte morphology abnormal [Unknown]
